FAERS Safety Report 6886879-2 (Version None)
Quarter: 2010Q3

REPORT INFORMATION
  Report Type: 
  Country: None (occurrence: None)
  Receive Date: 20100730
  Receipt Date: 20100730
  Transmission Date: 20110219
  Serious: Yes (Hospitalization, Other)
  Sender: FDA-Public Use
  Company Number: None

PATIENT
  Age: 11 Month
  Sex: Male
  Weight: 10.5461 kg

DRUGS (4)
  1. CHILDREN'S TYLENOL PLUS COLD [Suspect]
     Indication: EAR INFECTION
     Dosage: 1 TSP Q8HRS ROTATE W/MOT PO
     Route: 048
     Dates: start: 20100424, end: 20100429
  2. CHILDREN'S TYLENOL PLUS COLD [Suspect]
     Indication: PYREXIA
     Dosage: 1 TSP Q8HRS ROTATE W/MOT PO
     Route: 048
     Dates: start: 20100424, end: 20100429
  3. CHILDREN'S MOTRIN [Suspect]
     Indication: EAR INFECTION
     Dosage: 1 TSP Q8HRS ROTATE W/TYL PO
     Route: 048
     Dates: start: 20100424, end: 20100429
  4. CHILDREN'S MOTRIN [Suspect]
     Indication: PYREXIA
     Dosage: 1 TSP Q8HRS ROTATE W/TYL PO
     Route: 048
     Dates: start: 20100424, end: 20100429

REACTIONS (1)
  - FEBRILE CONVULSION [None]
